FAERS Safety Report 12296851 (Version 1)
Quarter: 2016Q2

REPORT INFORMATION
  Report Type: Spontaneous
  Country: US (occurrence: US)
  Receive Date: 20160422
  Receipt Date: 20160422
  Transmission Date: 20160815
  Serious: Yes (Other)
  Sender: FDA-Public Use
  Company Number: US-BAYER-2016-077463

PATIENT
  Sex: Female

DRUGS (1)
  1. MIRENA [Suspect]
     Active Substance: LEVONORGESTREL
     Dosage: 20 MCG/24HR, CONT
     Route: 015

REACTIONS (12)
  - Scar [Not Recovered/Not Resolved]
  - Lymphadenectomy [None]
  - Surgery [None]
  - Ulcer [Not Recovered/Not Resolved]
  - Gastric mucosal lesion [None]
  - Hysterectomy [None]
  - Pelvic inflammatory disease [None]
  - Device breakage [None]
  - Blood pressure inadequately controlled [None]
  - Device use error [None]
  - Device dislocation [None]
  - Osteoporosis [None]
